FAERS Safety Report 8991091 (Version 2)
Quarter: 2013Q3

REPORT INFORMATION
  Report Type: Spontaneous
  Country: US (occurrence: None)
  Receive Date: 20121220
  Receipt Date: 20130923
  Transmission Date: 20140515
  Serious: Yes (Hospitalization)
  Sender: FDA-Public Use
  Company Number: 2012-507

PATIENT
  Age: 77 Year
  Sex: Male

DRUGS (19)
  1. PRIALT (ZICONOTIDE) INTRATHECAL INFUSION [Suspect]
     Indication: PAIN
     Dosage: UNKNOW ONCE/HOUR
     Route: 037
  2. PRIALT (ZICONOTIDE) INTRATHECAL INFUSION [Suspect]
     Indication: POST LAMINECTOMY SYNDROME
     Dosage: UNKNOW ONCE/HOUR
     Route: 037
  3. FENTANYL (FENTANYL CITRATE) INJECTION [Suspect]
     Indication: PAIN
     Dosage: UNKNOW ONCE/HOUR
     Route: 037
  4. FENTANYL (FENTANYL CITRATE) INJECTION [Suspect]
     Indication: POST LAMINECTOMY SYNDROME
     Dosage: UNKNOW ONCE/HOUR
     Route: 037
  5. NORCO (HYDROCODONE BITARTRATE, PARACETAMOL) [Concomitant]
  6. OXYCODONE HYDROCHLORIDE (OXYCODONE HYDROCHLORIDE) [Concomitant]
  7. NORTRIPTYLINE HCL (NORTRIPTYLINE HYDROCHLORIDE) CAPSULE [Concomitant]
  8. CYMBALTA (DULOXETINE HYDROCHLORIDE) CAPSULE [Concomitant]
  9. FENTANYL (FENTANYL CITRATE) PATCH [Concomitant]
  10. FLOMAX (TAMSULOSIN HYDROCHLORIDE) CAPSULE [Concomitant]
  11. REMERON (MIRTAZAPINE) TABLET [Concomitant]
  12. KLONOPIN (CLONAZEPAM) TABLET [Concomitant]
  13. LIPITOR (ATORVASTATIN CALCIUM) TABLET [Concomitant]
  14. SOMA (CARISOPRODOL) TABLET [Concomitant]
  15. VESICARE (SOLIFENACIN SUCCINATE) TABLET [Concomitant]
  16. METOPROLOL SUCCINATE (METOPROLOL SUCCINATE) TABLET [Concomitant]
  17. VITAMIN D (COLECALCIFEROL) TABLET [Concomitant]
  18. BUPIVACAINE HYDROCHLORIDE [Suspect]
     Route: 037
  19. CLONIDINE [Suspect]
     Route: 037

REACTIONS (17)
  - Anaphylactic shock [None]
  - Pruritus generalised [None]
  - Hypersensitivity [None]
  - Loss of consciousness [None]
  - Gait disturbance [None]
  - Toxic encephalopathy [None]
  - Urinary incontinence [None]
  - Pollakiuria [None]
  - Obsessive thoughts [None]
  - Hypertension [None]
  - Musculoskeletal stiffness [None]
  - Diarrhoea [None]
  - Anxiety [None]
  - Depression [None]
  - Mood swings [None]
  - Abdominal pain [None]
  - Constipation [None]
